FAERS Safety Report 9296569 (Version 3)
Quarter: 2013Q3

REPORT INFORMATION
  Report Type: Report from Study
  Country: FI (occurrence: FI)
  Receive Date: 20130517
  Receipt Date: 20130701
  Transmission Date: 20140515
  Serious: Yes (Other)
  Sender: FDA-Public Use
  Company Number: FI-ELI_LILLY_AND_COMPANY-FI201305002965

PATIENT
  Sex: Female

DRUGS (8)
  1. TERIPARATIDE [Suspect]
     Indication: OSTEOPOROSIS
     Dosage: 20 UG, QD
     Route: 065
     Dates: start: 20120325
  2. CORTISONE [Concomitant]
     Indication: RASH
     Dosage: 0.25 MG, QD
     Route: 065
  3. THYROXIN [Concomitant]
     Indication: HYPOTHYROIDISM
     Dosage: 0.1 MG, QD
     Route: 065
  4. ENALAPRIL [Concomitant]
     Indication: BLOOD PRESSURE
     Dosage: 10 MG, QD
     Route: 065
  5. NATRILIX [Concomitant]
     Indication: BLOOD PRESSURE
     Dosage: 1.5 MG, QD
  6. CALCICHEW [Concomitant]
     Dosage: UNK, UNKNOWN
     Route: 065
  7. PREDNISOLON [Concomitant]
     Dosage: 2.5 MG, QD
  8. INDAPAMIDE [Concomitant]

REACTIONS (3)
  - Osteonecrosis of jaw [Not Recovered/Not Resolved]
  - Dental caries [Not Recovered/Not Resolved]
  - Erythema [Not Recovered/Not Resolved]
